FAERS Safety Report 8456986-1 (Version None)
Quarter: 2012Q2

REPORT INFORMATION
  Report Type: 
  Country: None (occurrence: None)
  Receive Date: 20120323
  Receipt Date: 20111205
  Transmission Date: 20120825
  Serious: Yes (Other)
  Sender: FDA-Public Use
  Company Number: 163-21880-11090813

PATIENT
  Age: 78 Year
  Sex: Male

DRUGS (12)
  1. LENALIDOMIDE [Suspect]
     Indication: MULTIPLE MYELOMA
     Dosage: 15 MG, X21 DAYS, PO 25 MG, DAILY X21 DAYS, PO
     Route: 048
     Dates: start: 20110215
  2. LENALIDOMIDE [Suspect]
     Indication: MULTIPLE MYELOMA
     Dosage: 15 MG, X21 DAYS, PO 25 MG, DAILY X21 DAYS, PO
     Route: 048
     Dates: start: 20100218
  3. MULTIVITAMIN [Concomitant]
  4. AMLODIPINE BESYLATE [Concomitant]
  5. COUMADIN [Concomitant]
  6. DEXAEMTHASONE (DEXAMETHASONE) [Concomitant]
  7. LOVASTATIN [Concomitant]
  8. INDOMETHACIN [Concomitant]
  9. VALSARTAN/HCTZ (CO-DIOVAN) [Concomitant]
  10. DIOVAN HCT (CO-DIOVAN) [Concomitant]
  11. ASPIRIN [Concomitant]
  12. DARBEPOETIN (DARBEPOETIN ALFA) [Concomitant]

REACTIONS (1)
  - DEEP VEIN THROMBOSIS [None]
